FAERS Safety Report 9780304 (Version 1)
Quarter: 2013Q4

REPORT INFORMATION
  Report Type: Spontaneous
  Country: US (occurrence: US)
  Receive Date: 20131224
  Receipt Date: 20131224
  Transmission Date: 20140711
  Serious: Yes (Hospitalization, Other)
  Sender: FDA-Public Use
  Company Number: US-PAR PHARMACEUTICAL, INC-2013SCPR007837

PATIENT
  Sex: 0

DRUGS (15)
  1. CIPROFLOXACIN ER [Suspect]
     Indication: URINARY TRACT INFECTION
     Dosage: 500 MG, BID
     Route: 048
     Dates: start: 2008
  2. CIPROFLOXACIN ER [Suspect]
     Dosage: 500 MG, EVERY 12 HOURS
     Route: 048
     Dates: start: 2012
  3. AUGMENTIN /00756801/ [Suspect]
     Indication: SINUSITIS
     Dosage: UNK, UNKNOWN
     Route: 065
  4. ATORVASTATIN [Concomitant]
     Indication: PRODUCT USED FOR UNKNOWN INDICATION
     Dosage: 40 MG, OD
     Route: 048
  5. DILTIAZEM HCL [Concomitant]
     Indication: PRODUCT USED FOR UNKNOWN INDICATION
     Dosage: 360 MG, / DAY
     Route: 048
  6. DILTIAZEM HCL [Concomitant]
     Dosage: 240 MG, / DAY
     Route: 048
  7. DILTIAZEM HCL [Concomitant]
     Dosage: 360 MG, / DAY
     Route: 048
  8. LOSARTAN [Concomitant]
     Indication: PRODUCT USED FOR UNKNOWN INDICATION
     Dosage: 100 MG, / DAY
     Route: 048
  9. LOSARTAN + HIDROCLOROTIAZIDA [Concomitant]
     Indication: PRODUCT USED FOR UNKNOWN INDICATION
     Dosage: 100-12.5 MG , / DAY
     Route: 048
  10. COUMADIN                           /00014802/ [Concomitant]
     Indication: PRODUCT USED FOR UNKNOWN INDICATION
     Dosage: 4 MG, / DAY
     Route: 048
  11. COUMADIN                           /00014802/ [Concomitant]
     Dosage: 4 MG, / DAY
     Route: 048
  12. ESOMEPRAZOLE [Concomitant]
     Indication: PRODUCT USED FOR UNKNOWN INDICATION
     Dosage: 40 MG, / DAY
     Route: 048
  13. ESOMEPRAZOLE [Concomitant]
     Dosage: 40 MG, / DAY
     Route: 048
     Dates: start: 2012
  14. HYDRALAZINE [Concomitant]
     Indication: PRODUCT USED FOR UNKNOWN INDICATION
     Dosage: 25 MG, TID
     Route: 048
  15. SOTALOL [Concomitant]
     Indication: PRODUCT USED FOR UNKNOWN INDICATION
     Dosage: 80 MG, BID
     Route: 048

REACTIONS (1)
  - Inappropriate antidiuretic hormone secretion [Recovered/Resolved]
